FAERS Safety Report 19454042 (Version 2)
Quarter: 2021Q3

REPORT INFORMATION
  Report Type: Spontaneous
  Country: DE (occurrence: DE)
  Receive Date: 20210623
  Receipt Date: 20210707
  Transmission Date: 20211014
  Serious: Yes (Hospitalization)
  Sender: FDA-Public Use
  Company Number: NVSC2021DE135870

PATIENT
  Sex: Male
  Weight: 55.1 kg

DRUGS (2)
  1. ILARIS [Suspect]
     Active Substance: CANAKINUMAB
     Indication: STILL^S DISEASE
     Dosage: 150 MG, Q4W
     Route: 065
     Dates: start: 20180913, end: 20190916
  2. ILARIS [Suspect]
     Active Substance: CANAKINUMAB
     Dosage: 150 MG, Q4W
     Route: 065
     Dates: start: 20200518

REACTIONS (1)
  - Testicular torsion [Recovered/Resolved]

NARRATIVE: CASE EVENT DATE: 20200701
